FAERS Safety Report 6824466-2 (Version None)
Quarter: 2010Q3

REPORT INFORMATION
  Report Type: 
  Country: None (occurrence: None)
  Receive Date: 20100708
  Receipt Date: 20061101
  Transmission Date: 20110219
  Serious: No
  Sender: FDA-Public Use
  Company Number: US-PFIZER INC-2006136369

PATIENT
  Sex: Female
  Weight: 63.96 kg

DRUGS (2)
  1. CHANTIX [Suspect]
     Indication: SMOKING CESSATION THERAPY
     Route: 048
     Dates: start: 20061001
  2. CADUET [Concomitant]
     Indication: HYPERTENSION
     Route: 048
     Dates: start: 20061001

REACTIONS (6)
  - CLUMSINESS [None]
  - DIZZINESS [None]
  - DYSPEPSIA [None]
  - FLATULENCE [None]
  - NAUSEA [None]
  - VOMITING [None]
